FAERS Safety Report 4554218-8 (Version None)
Quarter: 2005Q1

REPORT INFORMATION
  Report Type: 
  Country: None (occurrence: None)
  Receive Date: 20050118
  Receipt Date: 20050111
  Transmission Date: 20050727
  Serious: Yes (Hospitalization)
  Sender: FDA-Public Use
  Company Number: FR-BRISTOL-MYERS SQUIBB COMPANY-12821708

PATIENT
  Age: 62 Year
  Sex: Male
  Weight: 75 kg

DRUGS (5)
  1. COUMADIN [Suspect]
     Route: 048
     Dates: start: 20040215, end: 20041215
  2. BACTRIM [Suspect]
     Route: 048
     Dates: end: 20041216
  3. TAVANIC [Suspect]
     Indication: BRONCHITIS ACUTE
     Route: 048
     Dates: start: 20041202, end: 20041212
  4. ZOLPIDEM TARTRATE [Concomitant]
  5. LANSOPRAZOLE [Concomitant]

REACTIONS (4)
  - BRONCHITIS ACUTE [None]
  - DERMATITIS BULLOUS [None]
  - PALMAR-PLANTAR ERYTHRODYSAESTHESIA SYNDROME [None]
  - TOXIC SKIN ERUPTION [None]
